FAERS Safety Report 8261614-4 (Version None)
Quarter: 2012Q2

REPORT INFORMATION
  Report Type: 
  Country: None (occurrence: None)
  Receive Date: 20120405
  Receipt Date: 20120328
  Transmission Date: 20120825
  Serious: Yes (Hospitalization)
  Sender: FDA-Public Use
  Company Number: TN-SANOFI-AVENTIS-2012SA016109

PATIENT
  Age: 52 Year
  Sex: Male

DRUGS (3)
  1. CEFOTAXIME SODIUM [Suspect]
     Route: 042
  2. CIPROFLOXACIN [Concomitant]
     Route: 048
  3. FOSFOMYCIN [Concomitant]

REACTIONS (12)
  - DRUG RASH WITH EOSINOPHILIA AND SYSTEMIC SYMPTOMS [None]
  - PYREXIA [None]
  - ERYTHEMA [None]
  - PETECHIAE [None]
  - TONSILLAR HYPERTROPHY [None]
  - RASH MACULO-PAPULAR [None]
  - RASH PRURITIC [None]
  - FACE OEDEMA [None]
  - BLOOD LACTATE DEHYDROGENASE INCREASED [None]
  - WHITE BLOOD CELL COUNT INCREASED [None]
  - EOSINOPHILIA [None]
  - C-REACTIVE PROTEIN INCREASED [None]
